FAERS Safety Report 22108346 (Version 1)
Quarter: 2023Q1

REPORT INFORMATION
  Report Type: Report from Study
  Country: US (occurrence: None)
  Receive Date: 20230317
  Receipt Date: 20230317
  Transmission Date: 20230418
  Serious: Yes (Other)
  Sender: FDA-Public Use
  Company Number: 2023A056859

PATIENT
  Age: 60 Month
  Sex: Female

DRUGS (1)
  1. SELUMETINIB [Suspect]
     Active Substance: SELUMETINIB
     Indication: Neurofibromatosis
     Dosage: 25 MG/M2/APPROXIMATELY EVERY 12 HOURS ON A CONTINUOUS DOSING SCHEDULE (IN 28-DAY CYCLES)
     Route: 048

REACTIONS (1)
  - Blood creatine phosphokinase increased [Unknown]
